FAERS Safety Report 6663677-6 (Version None)
Quarter: 2010Q2

REPORT INFORMATION
  Report Type: 
  Country: None (occurrence: None)
  Receive Date: 20100401
  Receipt Date: 20100301
  Transmission Date: 20101027
  Serious: No
  Sender: FDA-Public Use
  Company Number: US-BAYER-201012600BCC

PATIENT
  Age: 45 Year
  Sex: Male
  Weight: 82 kg

DRUGS (5)
  1. ALEVE [Suspect]
     Indication: TENDON INJURY
     Dosage: UNIT DOSE: 220 MG
     Route: 048
     Dates: start: 20100216, end: 20100226
  2. CAFFEINE SUPPLEMENT [Concomitant]
     Route: 065
  3. CREATINE [Concomitant]
     Route: 065
  4. ORGANIC VITAMIN SUPPLEMENTS [Concomitant]
     Route: 065
  5. UNKNOWN SUPPLEMENTS [Concomitant]
     Route: 065

REACTIONS (4)
  - BURNING SENSATION [None]
  - PRURITUS [None]
  - RASH [None]
  - URTICARIA [None]
